FAERS Safety Report 9246316 (Version 1)
Quarter: 2013Q2

REPORT INFORMATION
  Report Type: Spontaneous
  Country: US (occurrence: US)
  Receive Date: 20130422
  Receipt Date: 20130422
  Transmission Date: 20140414
  Serious: No
  Sender: FDA-Public Use
  Company Number: US-BAYER-2013-044336

PATIENT
  Sex: 0

DRUGS (1)
  1. FINACEA [Suspect]

REACTIONS (2)
  - Skin irritation [None]
  - Discomfort [None]
